FAERS Safety Report 7871175-7 (Version None)
Quarter: 2011Q4

REPORT INFORMATION
  Report Type: 
  Country: None (occurrence: None)
  Receive Date: 20111003
  Receipt Date: 20101021
  Transmission Date: 20120403
  Serious: Yes (Hospitalization, Other)
  Sender: FDA-Public Use
  Company Number: 252690USA

PATIENT
  Age: 78 Year
  Sex: Female

DRUGS (1)
  1. FLUOXETINE [Suspect]
     Dosage: (20 MG)
     Dates: start: 20100901, end: 20100922

REACTIONS (6)
  - PARALYSIS [None]
  - ABNORMAL BEHAVIOUR [None]
  - ABASIA [None]
  - CONVULSION [None]
  - HYPERSOMNIA [None]
  - SLEEP PARALYSIS [None]
